FAERS Safety Report 8256580-1 (Version None)
Quarter: 2012Q2

REPORT INFORMATION
  Report Type: 
  Country: None (occurrence: None)
  Receive Date: 20120403
  Receipt Date: 20120329
  Transmission Date: 20120825
  Serious: Yes (Life-Threatening, Hospitalization, Other)
  Sender: FDA-Public Use
  Company Number: GB-PFIZER INC-2011312315

PATIENT
  Age: 42 Year
  Sex: Male
  Weight: 104 kg

DRUGS (10)
  1. VINCRISTINE SULFATE [Suspect]
     Indication: DIFFUSE LARGE B-CELL LYMPHOMA
     Dosage: 2 MG, DAILY
     Route: 042
     Dates: start: 20111122
  2. PIRENZEPINE [Concomitant]
     Indication: SCHIZOPHRENIA
     Dosage: UNK MG, 2X/DAY
  3. CLOZAPINE [Suspect]
     Indication: SCHIZOPHRENIA
     Dosage: 200 MG, 2X/DAY
     Route: 048
     Dates: start: 20100915, end: 20111201
  4. AMISULPRIDE [Concomitant]
     Indication: SCHIZOPHRENIA
     Dosage: 200 MG, 2X/DAY
  5. DOXORUBICIN HCL [Suspect]
     Indication: DIFFUSE LARGE B-CELL LYMPHOMA
     Dosage: 110 MG, DAILY
     Route: 042
     Dates: start: 20111122
  6. PREDNISOLONE [Suspect]
     Indication: DIFFUSE LARGE B-CELL LYMPHOMA
     Dosage: 60 MG, DAILY
     Dates: start: 20111122
  7. NEUPOGEN [Suspect]
     Indication: DIFFUSE LARGE B-CELL LYMPHOMA
     Dosage: 800 MG, DAILY
     Route: 042
     Dates: start: 20111123
  8. CLOZAPINE [Suspect]
     Dosage: 200 MG, 2X/DAY
     Route: 048
     Dates: start: 20111202
  9. CYCLOPHOSPHAMIDE [Suspect]
     Indication: DIFFUSE LARGE B-CELL LYMPHOMA
     Dosage: 1600 MG, DAILY
     Route: 042
     Dates: start: 20111122
  10. CITALOPRAM [Concomitant]
     Indication: SCHIZOPHRENIA
     Dosage: 20 MG, 2X/DAY

REACTIONS (7)
  - LEUKOPENIA [None]
  - DEEP VEIN THROMBOSIS [None]
  - AGRANULOCYTOSIS [None]
  - NEUTROPHIL COUNT DECREASED [None]
  - DIFFUSE LARGE B-CELL LYMPHOMA STAGE II [None]
  - NEUTROPENIA [None]
  - WHITE BLOOD CELL COUNT DECREASED [None]
